FAERS Safety Report 7828614-7 (Version None)
Quarter: 2011Q4

REPORT INFORMATION
  Report Type: 
  Country: None (occurrence: None)
  Receive Date: 20111020
  Receipt Date: 20111017
  Transmission Date: 20120403
  Serious: Yes (Other)
  Sender: FDA-Public Use
  Company Number: MA-BAYER-2011-100544

PATIENT
  Age: 53 Year
  Sex: Female

DRUGS (1)
  1. CIPROFLOXACIN [Suspect]
     Indication: DACRYOCYSTITIS

REACTIONS (4)
  - ARTHRALGIA [None]
  - PYREXIA [None]
  - ACUTE FEBRILE NEUTROPHILIC DERMATOSIS [None]
  - MYALGIA [None]
